FAERS Safety Report 7808331-X (Version None)
Quarter: 2011Q4

REPORT INFORMATION
  Report Type: 
  Country: None (occurrence: None)
  Receive Date: 20111012
  Receipt Date: 20111007
  Transmission Date: 20120403
  Serious: Yes (Hospitalization)
  Sender: FDA-Public Use
  Company Number: FR-SP-2011-07584

PATIENT
  Sex: Male

DRUGS (1)
  1. IMMUCYST [Suspect]
     Indication: BLADDER CANCER
     Route: 043
     Dates: start: 20110709, end: 20110709

REACTIONS (10)
  - DYSURIA [None]
  - CHOLESTASIS [None]
  - LEUKOCYTURIA [None]
  - WEIGHT DECREASED [None]
  - BOVINE TUBERCULOSIS [None]
  - PYREXIA [None]
  - LEUKOPENIA [None]
  - HAEMATURIA [None]
  - NEUTROPENIA [None]
  - CYTOLYTIC HEPATITIS [None]
